FAERS Safety Report 10741063 (Version 1)
Quarter: 2015Q1

REPORT INFORMATION
  Report Type: Spontaneous
  Country: DE (occurrence: DE)
  Receive Date: 20150127
  Receipt Date: 20150127
  Transmission Date: 20150721
  Serious: Yes (Other)
  Sender: FDA-Public Use
  Company Number: DE-BAYER-2015-010549

PATIENT
  Age: 43 Year
  Sex: Female
  Weight: 79.82 kg

DRUGS (1)
  1. MIRENA [Suspect]
     Active Substance: LEVONORGESTREL
     Indication: CONTRACEPTION
     Dosage: 20 MCG/24HR, CONT
     Route: 015
     Dates: start: 201304, end: 201410

REACTIONS (2)
  - Unintentional medical device removal [None]
  - Uterine polyp [Recovered/Resolved]

NARRATIVE: CASE EVENT DATE: 201410
